FAERS Safety Report 20308617 (Version 4)
Quarter: 2022Q1

REPORT INFORMATION
  Report Type: Report from Study
  Country: US (occurrence: US)
  Receive Date: 20220107
  Receipt Date: 20220219
  Transmission Date: 20220423
  Serious: Yes (Other)
  Sender: FDA-Public Use
  Company Number: US-NOVARTISTESTPH-NVSC2022US002790

PATIENT
  Age: 65 Year
  Sex: Male

DRUGS (1)
  1. ENTRESTO [Suspect]
     Active Substance: SACUBITRIL\VALSARTAN
     Indication: Cardiac failure
     Dosage: UNK
     Route: 065

REACTIONS (8)
  - Dizziness postural [Unknown]
  - Loss of consciousness [Unknown]
  - Fall [Unknown]
  - Bradykinesia [Unknown]
  - Decreased activity [Unknown]
  - Protein urine [Unknown]
  - Brain natriuretic peptide [Unknown]
  - Dizziness [Unknown]
